FAERS Safety Report 7359185-X (Version None)
Quarter: 2011Q1

REPORT INFORMATION
  Report Type: 
  Country: None (occurrence: None)
  Receive Date: 20110310
  Receipt Date: 20110225
  Transmission Date: 20110831
  Serious: Yes (Hospitalization, Other)
  Sender: FDA-Public Use
  Company Number: ACO_21713_2011

PATIENT
  Age: 32 Year
  Sex: Female
  Weight: 94.8 kg

DRUGS (16)
  1. ZYRTEC [Concomitant]
  2. IBUPROFEN [Concomitant]
  3. XANAX [Concomitant]
  4. NEURONTIN [Concomitant]
  5. LIDODERM [Concomitant]
  6. MECLIZINE /00072801/ (MECLOZINE) [Concomitant]
  7. AVONEX [Concomitant]
  8. AMPYRA [Suspect]
     Indication: GAIT DISTURBANCE
     Dosage: 10 MG, BID ORAL
     Route: 048
     Dates: start: 20100701, end: 20110128
  9. WELLBUTRIN [Concomitant]
  10. SOMA [Concomitant]
  11. PROVIGIL [Concomitant]
  12. OXYBUTYNIN [Concomitant]
  13. VICODIN [Concomitant]
  14. DESOGESTREL AND ETHINYL ESTRADIOL [Concomitant]
  15. IMITREX /01044801/ (SUMATRIPTAN) [Concomitant]
  16. TRAZODONE HCL [Concomitant]

REACTIONS (7)
  - LOSS OF CONSCIOUSNESS [None]
  - MEMORY IMPAIRMENT [None]
  - FALL [None]
  - FACE INJURY [None]
  - GRUNTING [None]
  - CONVULSION [None]
  - BLADDER DISORDER [None]
